FAERS Safety Report 8186793 (Version 4)
Quarter: 2013Q3

REPORT INFORMATION
  Report Type: Report from Study
  Country: US (occurrence: US)
  Receive Date: 20111018
  Receipt Date: 20130905
  Transmission Date: 20140515
  Serious: Yes (Hospitalization, Other)
  Sender: FDA-Public Use
  Company Number: US-ACTELION-A-NJ2011-55198

PATIENT
  Age: 83 Year
  Sex: Female

DRUGS (8)
  1. TRACLEER [Suspect]
     Indication: PULMONARY HYPERTENSION
     Dosage: 125 MG, UNK
     Route: 048
     Dates: start: 200906
  2. VICODIN [Suspect]
  3. COUMADIN [Concomitant]
     Dosage: 7 MG W/F, 6MG M/T/TH/SAT/SUN
     Dates: start: 201307
  4. OXYGEN [Concomitant]
  5. SYMBICORT [Concomitant]
     Dosage: 160/4.5 BID
     Route: 055
  6. MUCINEX [Concomitant]
     Dosage: 600 MG, BID
     Route: 048
     Dates: start: 201301
  7. VITAMIN D [Concomitant]
     Dosage: 1000 I/U, QD
     Route: 048
     Dates: start: 201301
  8. TUMS [Concomitant]
     Dosage: 500 MG, BID
     Dates: start: 2013

REACTIONS (15)
  - Fall [Recovered/Resolved]
  - Pelvic fracture [Recovered/Resolved]
  - Arthralgia [Unknown]
  - Groin pain [Unknown]
  - Heart rate decreased [Recovered/Resolved]
  - Cardiac pacemaker insertion [Recovered/Resolved]
  - Loss of consciousness [Recovered/Resolved]
  - Urinary tract infection [Unknown]
  - Joint injury [Unknown]
  - Cast application [Unknown]
  - Ligament sprain [Unknown]
  - Syncope [Recovered/Resolved]
  - Dyspnoea [Not Recovered/Not Resolved]
  - Oedema peripheral [Unknown]
  - Dizziness [Recovered/Resolved]
